FAERS Safety Report 22912316 (Version 2)
Quarter: 2024Q1

REPORT INFORMATION
  Report Type: Report from Study
  Country: US (occurrence: US)
  Receive Date: 20230906
  Receipt Date: 20240118
  Transmission Date: 20240410
  Serious: Yes (Other)
  Sender: FDA-Public Use
  Company Number: US-ABBVIE-5395801

PATIENT
  Age: 2 Year
  Sex: Female
  Weight: 12.7 kg

DRUGS (3)
  1. HUMIRA [Suspect]
     Active Substance: ADALIMUMAB
     Indication: Psoriatic arthropathy
     Route: 058
     Dates: start: 20220707, end: 20230222
  2. IBUPROFEN [Concomitant]
     Active Substance: IBUPROFEN
     Indication: Juvenile idiopathic arthritis
     Dosage: TIME INTERVAL: 0.33333333 DAYS
     Dates: start: 20220601
  3. METHOTREXATE [Concomitant]
     Active Substance: METHOTREXATE
     Indication: Product used for unknown indication

REACTIONS (6)
  - Lupus-like syndrome [Recovered/Resolved]
  - Antinuclear antibody positive [Unknown]
  - Polyarthritis [Unknown]
  - Histone antibody positive [Unknown]
  - Double stranded DNA antibody positive [Unknown]
  - Rash [Unknown]

NARRATIVE: CASE EVENT DATE: 20230222
